FAERS Safety Report 6333393-9 (Version None)
Quarter: 2009Q3

REPORT INFORMATION
  Report Type: 
  Country: None (occurrence: None)
  Receive Date: 20090828
  Receipt Date: 20090826
  Transmission Date: 20100115
  Serious: Yes (Hospitalization, Other)
  Sender: FDA-Public Use
  Company Number: US-B.I. PHARMACEUTICALS,INC./RIDGEFIELD-2009-BP-10096BP

PATIENT
  Sex: Female

DRUGS (1)
  1. SPIRIVA [Suspect]
     Indication: CHRONIC OBSTRUCTIVE PULMONARY DISEASE
     Dosage: 18 MCG
     Route: 055
     Dates: start: 20080101

REACTIONS (6)
  - ARRHYTHMIA [None]
  - COLLAPSE OF LUNG [None]
  - DECREASED APPETITE [None]
  - LUNG NEOPLASM MALIGNANT [None]
  - NAUSEA [None]
  - PULMONARY MASS [None]
